FAERS Safety Report 14389423 (Version 2)
Quarter: 2018Q4

REPORT INFORMATION
  Report Type: Spontaneous
  Country: US (occurrence: US)
  Receive Date: 20180115
  Receipt Date: 20181029
  Transmission Date: 20190204
  Serious: Yes (Other)
  Sender: FDA-Public Use
  Company Number: US-SA-2017SA244192

PATIENT
  Age: 52 Year
  Sex: Female
  Weight: 74.8 kg

DRUGS (3)
  1. TAXOTERE [Suspect]
     Active Substance: DOCETAXEL
     Indication: BREAST CANCER FEMALE
     Dosage: 156 MG - 158 MG EVERY TWO WEEKS
     Route: 042
     Dates: start: 20090930, end: 20090930
  2. TAXOTERE [Suspect]
     Active Substance: DOCETAXEL
     Dosage: 156 MG - 158 MG EVERY TWO WEEKS
     Route: 042
     Dates: start: 20091112, end: 20091112
  3. ELLENCE [Concomitant]
     Active Substance: EPIRUBICIN HYDROCHLORIDE
     Dosage: UNK
     Route: 065

REACTIONS (2)
  - Psychological trauma [Unknown]
  - Alopecia [Recovering/Resolving]

NARRATIVE: CASE EVENT DATE: 200912
